FAERS Safety Report 10225293 (Version 1)
Quarter: 2014Q2

REPORT INFORMATION
  Report Type: Spontaneous
  Country: FR (occurrence: FR)
  Receive Date: 20140609
  Receipt Date: 20140609
  Transmission Date: 20141212
  Serious: Yes (Hospitalization)
  Sender: FDA-Public Use
  Company Number: FR-B.I. PHARMACEUTICALS,INC./RIDGEFIELD-2014-BI-25238FF

PATIENT
  Sex: Male

DRUGS (2)
  1. SIFROL [Suspect]
     Indication: PARKINSON^S DISEASE
     Dosage: 2.1 MG
     Route: 048
  2. SIFROL [Suspect]
     Dosage: 0.52 MG
     Route: 048

REACTIONS (5)
  - Fall [Unknown]
  - Malaise [Recovered/Resolved]
  - Fracture [Unknown]
  - Hypotension [Unknown]
  - Loss of consciousness [Unknown]
